FAERS Safety Report 5138676-6 (Version None)
Quarter: 2006Q4

REPORT INFORMATION
  Report Type: 
  Country: None (occurrence: None)
  Receive Date: 20061030
  Receipt Date: 20060721
  Transmission Date: 20070319
  Serious: Yes (Hospitalization)
  Sender: FDA-Public Use
  Company Number: US-KINGPHARMUSA00001-K200600946

PATIENT
  Age: 91 Year
  Sex: Female

DRUGS (10)
  1. ALTACE [Suspect]
     Indication: CARDIOVASCULAR EVENT PROPHYLAXIS
     Dosage: 2.5 MG, QD
     Route: 048
     Dates: start: 20060601, end: 20060606
  2. INDOMETHACIN [Suspect]
     Dosage: 150 MG, QD
     Route: 048
     Dates: start: 20060415, end: 20060606
  3. ASPIRIN [Concomitant]
     Indication: CARDIOVASCULAR EVENT PROPHYLAXIS
     Dosage: 75 MG, QD
     Route: 048
     Dates: end: 20060401
  4. ATENOLOL [Concomitant]
     Dosage: 100 MG, QD
  5. BENDROFLUMETHIAZIDE (BENDROFLUMETHIAZIDE) [Concomitant]
     Dosage: 2.5 MG, UNK
  6. BISOPROLOL FUMARATE [Concomitant]
     Dosage: 5 MG, UNK
  7. CLOPIDOGREL [Concomitant]
     Dosage: 75 MG, UNK
  8. FRUMIL [Concomitant]
     Dosage: 1 U, UNK
  9. LERCANIDIPINE [Concomitant]
     Dosage: 20 MG, UNK
  10. ACETAMINOPHEN [Concomitant]
     Dosage: 4 G, UNK

REACTIONS (5)
  - CREATININE RENAL CLEARANCE DECREASED [None]
  - FALL [None]
  - HEAD INJURY [None]
  - RENAL FAILURE ACUTE [None]
  - SYNCOPE [None]
